FAERS Safety Report 10697503 (Version 2)
Quarter: 2015Q1

REPORT INFORMATION
  Report Type: Other
  Country: IT (occurrence: IT)
  Receive Date: 20150108
  Receipt Date: 20150115
  Transmission Date: 20150721
  Serious: Yes (Other)
  Sender: FDA-Public Use
  Company Number: IT-VERTEX PHARMACEUTICALS-2015-000051

PATIENT
  Age: 51 Year
  Sex: Male
  Weight: 72 kg

DRUGS (3)
  1. PEGINTERFERON ALFA-2A [Suspect]
     Active Substance: PEGINTERFERON ALFA-2A
     Indication: HEPATITIS CHRONIC ACTIVE
     Dosage: 180 DF, QW
     Route: 065
     Dates: start: 20130419, end: 20140317
  2. INCIVO [Suspect]
     Active Substance: TELAPREVIR
     Indication: HEPATITIS CHRONIC ACTIVE
     Dosage: 750 MG, TID
     Route: 048
     Dates: start: 20130419, end: 20130711
  3. RIBAVIRIN. [Suspect]
     Active Substance: RIBAVIRIN
     Indication: HEPATITIS CHRONIC ACTIVE
     Dosage: 1000 MG, QD
     Route: 065
     Dates: start: 20130419, end: 20140317

REACTIONS (1)
  - Dermatitis [Recovered/Resolved]

NARRATIVE: CASE EVENT DATE: 20130601
